FAERS Safety Report 5024922-6 (Version None)
Quarter: 2006Q2

REPORT INFORMATION
  Report Type: 
  Country: None (occurrence: None)
  Receive Date: 20060426
  Receipt Date: 20060222
  Transmission Date: 20061013
  Serious: Yes (Other)
  Sender: FDA-Public Use
  Company Number: 2006027033

PATIENT
  Sex: Female
  Weight: 54.8852 kg

DRUGS (7)
  1. LYRICA [Suspect]
     Indication: HERPES ZOSTER
     Dosage: 50 MG (50 MG, 1 IN 1 D), ORAL
     Route: 048
     Dates: start: 20060221, end: 20060222
  2. PRINIVIL [Concomitant]
  3. SYNTHROID [Concomitant]
  4. LOPRESSOR [Concomitant]
  5. LESCOL [Concomitant]
  6. INSULIN [Concomitant]
  7. VITAMINS (VITAMINS) [Concomitant]

REACTIONS (6)
  - ACTIVITIES OF DAILY LIVING IMPAIRED [None]
  - FATIGUE [None]
  - FEELING DRUNK [None]
  - GAIT DISTURBANCE [None]
  - SOMNOLENCE [None]
  - VISION BLURRED [None]
